FAERS Safety Report 6498129-X (Version None)
Quarter: 2009Q4

REPORT INFORMATION
  Report Type: 
  Country: None (occurrence: None)
  Receive Date: 20091215
  Receipt Date: 20091209
  Transmission Date: 20100525
  Serious: Yes (Other)
  Sender: FDA-Public Use
  Company Number: JP-SANOFI-AVENTIS-A01200911083

PATIENT
  Age: 68 Year
  Sex: Female
  Weight: 44 kg

DRUGS (4)
  1. PLAVIX [Suspect]
     Indication: CEREBRAL INFARCTION
     Route: 048
     Dates: start: 20090317, end: 20091023
  2. ITOPRIDE [Suspect]
     Indication: REFLUX OESOPHAGITIS
     Dosage: UNK
     Route: 048
     Dates: start: 20090722, end: 20091023
  3. ETHYL LOFLAZEPATE [Suspect]
     Indication: REFLUX OESOPHAGITIS
     Route: 048
     Dates: start: 20090722, end: 20091023
  4. LANSOPRAZOLE [Suspect]
     Indication: REFLUX OESOPHAGITIS
     Route: 048
     Dates: start: 20090722, end: 20091023

REACTIONS (2)
  - DECREASED APPETITE [None]
  - LIVER DISORDER [None]
